FAERS Safety Report 24903448 (Version 1)
Quarter: 2025Q1

REPORT INFORMATION
  Report Type: Spontaneous
  Country: DE (occurrence: DE)
  Receive Date: 20250130
  Receipt Date: 20250130
  Transmission Date: 20250408
  Serious: Yes (Other)
  Sender: BIOTEST
  Company Number: DE-PEI-CADR2024332653

PATIENT
  Age: 62 Year
  Sex: Male
  Weight: 108 kg

DRUGS (1)
  1. YIMMUGO [Suspect]
     Active Substance: HUMAN IMMUNOGLOBULIN G-DIRA
     Indication: Immunodeficiency
     Dosage: 2X60GR
     Route: 042
     Dates: start: 20241202, end: 20241203

REACTIONS (2)
  - Arrhythmia [Not Recovered/Not Resolved]
  - Atrial fibrillation [Not Recovered/Not Resolved]

NARRATIVE: CASE EVENT DATE: 20241203
